FAERS Safety Report 5795252-X (Version None)
Quarter: 2008Q2

REPORT INFORMATION
  Report Type: 
  Country: None (occurrence: None)
  Receive Date: 20080625
  Receipt Date: 20080613
  Transmission Date: 20081010
  Serious: Yes (Other)
  Sender: FDA-Public Use
  Company Number: 2008BI015351

PATIENT
  Age: 22 Year
  Sex: Female

DRUGS (1)
  1. TYSABRI [Suspect]
     Indication: RELAPSING-REMITTING MULTIPLE SCLEROSIS
     Dosage: 300 MG;QM;IV
     Route: 042
     Dates: start: 20080409, end: 20080601

REACTIONS (13)
  - ABNORMAL BEHAVIOUR [None]
  - ALANINE AMINOTRANSFERASE INCREASED [None]
  - AMNESIA [None]
  - ASPARTATE AMINOTRANSFERASE INCREASED [None]
  - DIPLOPIA [None]
  - ENCEPHALITIS [None]
  - EYE DISORDER [None]
  - FEELING ABNORMAL [None]
  - GAIT DISTURBANCE [None]
  - NEUTROPENIA [None]
  - PRURITUS [None]
  - RASH PUSTULAR [None]
  - VERTIGO [None]
